FAERS Safety Report 24732642 (Version 1)
Quarter: 2024Q4

REPORT INFORMATION
  Report Type: Spontaneous
  Country: US (occurrence: None)
  Receive Date: 20241213
  Receipt Date: 20241213
  Transmission Date: 20250114
  Serious: Yes (Life-Threatening, Other)
  Sender: Public
  Company Number: None

PATIENT
  Age: 73 Year
  Sex: Male
  Weight: 94.07 kg

DRUGS (2)
  1. LUMASON [Suspect]
     Active Substance: SULFUR HEXAFLUORIDE
     Indication: Scan with contrast
     Dosage: FREQUENCY : TWICE A DAY;?
     Route: 040
     Dates: start: 20241204, end: 20241204
  2. LUMASON [Concomitant]
     Active Substance: SULFUR HEXAFLUORIDE
     Dates: start: 20241204, end: 20241204

REACTIONS (4)
  - Hyperhidrosis [None]
  - Hypotension [None]
  - Unresponsive to stimuli [None]
  - Atrial fibrillation [None]

NARRATIVE: CASE EVENT DATE: 20241204
